FAERS Safety Report 8608316 (Version 4)
Quarter: 2014Q1

REPORT INFORMATION
  Report Type: Spontaneous
  Country: US (occurrence: US)
  Receive Date: 20120611
  Receipt Date: 20140123
  Transmission Date: 20141002
  Serious: Yes (Other)
  Sender: FDA-Public Use
  Company Number: US-ASTRAZENECA-2012SE35390

PATIENT
  Age: 37 Year
  Sex: Male
  Weight: 94.8 kg

DRUGS (15)
  1. NEXIUM [Suspect]
     Indication: DYSPEPSIA
     Route: 048
     Dates: start: 2004, end: 2010
  2. NEXIUM [Suspect]
     Indication: DYSPEPSIA
     Route: 048
     Dates: start: 20070214
  3. PRILOSEC [Suspect]
     Route: 048
  4. PRILOSEC [Suspect]
     Route: 048
     Dates: start: 20070907
  5. PEPCID [Concomitant]
     Dates: start: 2010
  6. MULTI VITAMINS [Concomitant]
  7. HYDROCHLOROTHIAZIDE WATER PILL [Concomitant]
     Indication: HYPERTENSION
  8. NIACIN [Concomitant]
  9. CALCIUM [Concomitant]
  10. PREDNISONE [Concomitant]
     Dates: start: 20070221
  11. ALPRAZOLAM [Concomitant]
     Dates: start: 20080317
  12. FAMOTIDINE [Concomitant]
     Route: 048
     Dates: start: 20131126
  13. FISH OIL [Concomitant]
     Route: 048
     Dates: start: 20131126
  14. CENTRUM [Concomitant]
     Route: 048
     Dates: start: 20131126
  15. ZANTAC [Concomitant]
     Route: 048
     Dates: start: 20131126

REACTIONS (5)
  - Bone cancer [Unknown]
  - Osteoporosis [Unknown]
  - Multiple fractures [Unknown]
  - Foot fracture [Unknown]
  - Muscle strain [Unknown]
